FAERS Safety Report 23659083 (Version 1)
Quarter: 2024Q1

REPORT INFORMATION
  Report Type: Spontaneous
  Country: US (occurrence: US)
  Receive Date: 20240321
  Receipt Date: 20240321
  Transmission Date: 20240409
  Serious: No
  Sender: FDA-Public Use
  Company Number: US-BRAEBURN-US-BRA-24-000024

PATIENT

DRUGS (3)
  1. BRIXADI [Suspect]
     Active Substance: BUPRENORPHINE
     Indication: Drug use disorder
     Dosage: 128 MILLIGRAM, MONTHLY
     Route: 065
     Dates: start: 20231212
  2. SUBLOCADE [Concomitant]
     Active Substance: BUPRENORPHINE
     Indication: Product used for unknown indication
     Dosage: 100 MILLIGRAM
     Route: 065
     Dates: start: 20230623, end: 202308
  3. SUBLOCADE [Concomitant]
     Active Substance: BUPRENORPHINE
     Dosage: 300 MILLIGRAM
     Route: 065
     Dates: start: 202308, end: 202312

REACTIONS (1)
  - Withdrawal syndrome [Unknown]
